FAERS Safety Report 14458219 (Version 9)
Quarter: 2019Q4

REPORT INFORMATION
  Report Type: Spontaneous
  Country: JP (occurrence: JP)
  Receive Date: 20180130
  Receipt Date: 20191209
  Transmission Date: 20200122
  Serious: Yes (Death, Life-Threatening, Hospitalization)
  Sender: FDA-Public Use
  Company Number: JP-ACTELION-A-CH2018-166392

PATIENT
  Age: 80 Year
  Sex: Female
  Weight: 47.4 kg

DRUGS (20)
  1. ASPARA [Concomitant]
     Active Substance: CALCIUM ASPARTATE
     Dosage: 2700 MG, QD
     Dates: start: 20170114, end: 20180114
  2. OPSUMIT [Suspect]
     Active Substance: MACITENTAN
     Indication: PULMONARY ARTERIAL HYPERTENSION
     Dosage: 10 MG, QD
     Route: 048
     Dates: start: 20171003, end: 20180114
  3. NEXIUM [Concomitant]
     Active Substance: ESOMEPRAZOLE MAGNESIUM
     Dosage: 20 MG, QD
     Dates: start: 20160924, end: 20180114
  4. FERROMIA [Concomitant]
     Active Substance: SODIUM FERROUS CITRATE
     Indication: ANAEMIA
     Dosage: 1.2 G, QD
     Dates: start: 20170526, end: 20170716
  5. WARFARIN [Suspect]
     Active Substance: WARFARIN
     Indication: PULMONARY ARTERIAL HYPERTENSION
     Dosage: 1 MG, QD
     Route: 048
     Dates: start: 20160925, end: 20180109
  6. ADEMPAS [Concomitant]
     Active Substance: RIOCIGUAT
     Indication: PULMONARY ARTERIAL HYPERTENSION
     Dosage: 3 MG, QD
     Dates: start: 20170619, end: 20180114
  7. CARELOAD [Concomitant]
     Active Substance: BERAPROST SODIUM
     Indication: PULMONARY ARTERIAL HYPERTENSION
     Dosage: 120 ?G, QD
     Dates: start: 20170628, end: 20171008
  8. OXYGEN. [Concomitant]
     Active Substance: OXYGEN
  9. KALGUT [Concomitant]
     Active Substance: DENOPAMINE
     Indication: CARDIAC FAILURE
     Dosage: 15 MG, QD
     Dates: start: 20170719, end: 20180114
  10. SAMSCA [Concomitant]
     Active Substance: TOLVAPTAN
     Indication: CARDIAC FAILURE
     Dosage: 15 MG, QD
     Dates: start: 20170117, end: 20180114
  11. UNIPHYL [Concomitant]
     Active Substance: THEOPHYLLINE ANHYDROUS
     Dosage: 200 MG, QD
     Dates: start: 20170126, end: 20171006
  12. UPTRAVI [Suspect]
     Active Substance: SELEXIPAG
     Indication: PULMONARY ARTERIAL HYPERTENSION
     Dosage: 0.2 MG, BID
     Route: 048
     Dates: start: 20170628, end: 20170704
  13. FEBURIC [Concomitant]
     Active Substance: FEBUXOSTAT
     Indication: HYPERURICAEMIA
     Dosage: 20 MG, QD
     Dates: start: 20160927, end: 20180114
  14. FERROUS FUMARATE [Concomitant]
     Active Substance: FERROUS FUMARATE
  15. FLUITRAN [Concomitant]
     Active Substance: TRICHLORMETHIAZIDE
     Indication: CARDIAC FAILURE
     Dosage: 1 MG, QD
     Dates: start: 20170713, end: 20170908
  16. LEVOFLOXACINO ONEDOSE [Concomitant]
     Indication: URINARY TRACT INFECTION
     Dosage: 500 MG, QD
     Dates: start: 20171218, end: 20171219
  17. UPTRAVI [Suspect]
     Active Substance: SELEXIPAG
     Dosage: 0.4 MG, BID
     Route: 048
     Dates: start: 20170705, end: 20170712
  18. UPTRAVI [Suspect]
     Active Substance: SELEXIPAG
     Dosage: 0.6 MG, BID
     Route: 048
     Dates: start: 20170713, end: 20170720
  19. UPTRAVI [Suspect]
     Active Substance: SELEXIPAG
     Dosage: 0.8 MG, BID
     Route: 048
     Dates: start: 20170721, end: 20180114
  20. LASIX [Concomitant]
     Active Substance: FUROSEMIDE
     Indication: CARDIAC FAILURE
     Dosage: 40 MG, QD
     Dates: start: 20170117, end: 20180114

REACTIONS (7)
  - Anaemia [Not Recovered/Not Resolved]
  - Hypotension [Not Recovered/Not Resolved]
  - Urinary tract infection [Recovering/Resolving]
  - Pericardial effusion [Not Recovered/Not Resolved]
  - Gastric cancer recurrent [Fatal]
  - Metastases to liver [Fatal]
  - Blood alkaline phosphatase increased [Fatal]

NARRATIVE: CASE EVENT DATE: 20170715
